FAERS Safety Report 10597105 (Version 4)
Quarter: 2024Q4

REPORT INFORMATION
  Report Type: Spontaneous
  Country: PL (occurrence: PL)
  Receive Date: 20141121
  Receipt Date: 20241220
  Transmission Date: 20250115
  Serious: Yes (Hospitalization, Other)
  Sender: ACCORD
  Company Number: PL-ACCORD-027134

PATIENT
  Age: 56 Year
  Sex: Female

DRUGS (5)
  1. MYCOPHENOLATE MOFETIL [Suspect]
     Active Substance: MYCOPHENOLATE MOFETIL
     Indication: Transplant
     Dosage: 2 G, QD
  2. TACROLIMUS [Suspect]
     Active Substance: TACROLIMUS
     Indication: Transplant
     Dosage: SERUM LEVEL, 10 TO 15 NG/ML
  3. METHYLPREDNISOLONE [Suspect]
     Active Substance: METHYLPREDNISOLONE
     Indication: Transplant
     Dosage: 20 TO 40 MG/DAY
  4. PREDNISONE [Suspect]
     Active Substance: PREDNISONE
     Indication: Transplant
     Dosage: 20 TO 40 MG/DAY
  5. SULFAMETHOXAZOLE\TRIMETHOPRIM [Concomitant]
     Active Substance: SULFAMETHOXAZOLE\TRIMETHOPRIM
     Indication: Prophylaxis

REACTIONS (4)
  - Herpes zoster [Recovered/Resolved]
  - Off label use [Unknown]
  - Tonsillitis [Recovered/Resolved]
  - Cytomegalovirus infection [Recovered/Resolved]
